FAERS Safety Report 10553377 (Version 2)
Quarter: 2014Q4

REPORT INFORMATION
  Report Type: Report from Study
  Country: JP (occurrence: JP)
  Receive Date: 20141030
  Receipt Date: 20141030
  Transmission Date: 20150529
  Serious: Yes (Hospitalization)
  Sender: FDA-Public Use
  Company Number: JP-BIOGENIDEC-2014BI060711

PATIENT
  Age: 37 Year
  Sex: Male
  Weight: 56 kg

DRUGS (16)
  1. GILENYA [Concomitant]
     Active Substance: FINGOLIMOD HYDROCHLORIDE
     Indication: MULTIPLE SCLEROSIS
     Route: 048
     Dates: start: 20130108, end: 20140620
  2. EDIROL [Concomitant]
     Active Substance: ELDECALCITOL
     Indication: MULTIPLE SCLEROSIS
     Route: 048
     Dates: start: 20140711
  3. AZUNOL GARGLE LIQUID [Concomitant]
     Indication: INFECTION PROPHYLAXIS
     Route: 061
     Dates: start: 20131225, end: 20140620
  4. EDIROL [Concomitant]
     Active Substance: ELDECALCITOL
     Indication: MULTIPLE SCLEROSIS
     Route: 048
     Dates: start: 2012, end: 20140620
  5. MIYA-BM [Concomitant]
     Active Substance: CLOSTRIDIUM BUTYRICUM SPORES STRAIN M-55
     Indication: FAECAL INCONTINENCE
     Route: 048
     Dates: start: 20130220, end: 20140620
  6. ISODINE [Concomitant]
     Active Substance: POVIDONE-IODINE
     Indication: INFECTION PROPHYLAXIS
     Route: 061
     Dates: start: 20131225, end: 20140620
  7. FAMPRIDINE [Suspect]
     Active Substance: DALFAMPRIDINE
     Indication: MULTIPLE SCLEROSIS
     Route: 048
     Dates: start: 20140219, end: 20140620
  8. KENALOG [Concomitant]
     Active Substance: TRIAMCINOLONE ACETONIDE
     Indication: STOMATITIS
     Route: 061
     Dates: start: 20130911
  9. BROTIZOLAM [Concomitant]
     Active Substance: BROTIZOLAM
     Indication: INSOMNIA
     Route: 048
     Dates: start: 20140402, end: 20140620
  10. URSODEOXYCHOLIC [Concomitant]
     Indication: ALANINE AMINOTRANSFERASE INCREASED
     Route: 048
     Dates: start: 20140402, end: 20140620
  11. METHADERM [Concomitant]
     Indication: DERMATITIS ATOPIC
     Route: 061
     Dates: start: 20131008
  12. URSODEOXYCHOLIC [Concomitant]
     Indication: GAMMA-GLUTAMYLTRANSFERASE INCREASED
     Route: 048
     Dates: start: 20140402, end: 20140620
  13. SELTOUCH [Concomitant]
     Active Substance: FELBINAC
     Indication: MULTIPLE SCLEROSIS
     Route: 061
     Dates: start: 2012
  14. URSODEOXYCHOLIC [Concomitant]
     Indication: ALANINE AMINOTRANSFERASE INCREASED
     Route: 048
     Dates: start: 20140708
  15. OMEPRAZOLE. [Concomitant]
     Active Substance: OMEPRAZOLE
     Indication: GASTRITIS PROPHYLAXIS
     Route: 042
     Dates: start: 20140621
  16. URSODEOXYCHOLIC [Concomitant]
     Indication: GAMMA-GLUTAMYLTRANSFERASE INCREASED
     Route: 048
     Dates: start: 20140708

REACTIONS (2)
  - Pneumonia aspiration [Recovered/Resolved]
  - Seizure [Recovered/Resolved]

NARRATIVE: CASE EVENT DATE: 20140620
